FAERS Safety Report 8995537 (Version 1)
Quarter: 2013Q1

REPORT INFORMATION
  Report Type: Spontaneous
  Country: US (occurrence: US)
  Receive Date: 20130103
  Receipt Date: 20130103
  Transmission Date: 20140127
  Serious: No
  Sender: FDA-Public Use
  Company Number: US-ABBOTT-12P-163-0909214-00

PATIENT
  Age: 48 None
  Sex: Female
  Weight: 71.28 kg

DRUGS (4)
  1. SYNTHROID [Suspect]
     Indication: HYPOTHYROIDISM
     Dates: start: 201008, end: 2011
  2. SYNTHROID [Suspect]
     Dates: start: 2011, end: 20120221
  3. SYNTHROID [Suspect]
     Dates: start: 20120221
  4. HYOSCYAMINE SULFATE [Suspect]
     Indication: PRODUCT USED FOR UNKNOWN INDICATION
     Dates: start: 20120202, end: 20120221

REACTIONS (6)
  - Drug dispensing error [Unknown]
  - Wrong drug administered [Unknown]
  - Musculoskeletal stiffness [Unknown]
  - Depressed mood [Unknown]
  - Asthenia [Unknown]
  - Drug dose omission [Unknown]
